FAERS Safety Report 14279261 (Version 3)
Quarter: 2018Q1

REPORT INFORMATION
  Report Type: Spontaneous
  Country: CZ (occurrence: CZ)
  Receive Date: 20171212
  Receipt Date: 20180103
  Transmission Date: 20180508
  Serious: Yes (Other)
  Sender: FDA-Public Use
  Company Number: CZ-B.I. PHARMACEUTICALS,INC./RIDGEFIELD-2017-BI-063913

PATIENT
  Sex: Male

DRUGS (4)
  1. DIAPREL [Concomitant]
     Active Substance: GLICLAZIDE
     Dosage: 1 TBLSP
     Route: 048
  2. JARDIANCE [Suspect]
     Active Substance: EMPAGLIFLOZIN
     Indication: TYPE 2 DIABETES MELLITUS
     Route: 048
  3. JARDIANCE [Suspect]
     Active Substance: EMPAGLIFLOZIN
     Route: 048
     Dates: start: 201711
  4. DIAPREL [Concomitant]
     Active Substance: GLICLAZIDE
     Indication: TYPE 2 DIABETES MELLITUS
     Dosage: 2 TBLSP
     Route: 048

REACTIONS (10)
  - Hyperhidrosis [Unknown]
  - Eye pain [Unknown]
  - Hyperhidrosis [Unknown]
  - Overdose [Unknown]
  - Thirst [Unknown]
  - Fatigue [Unknown]
  - Vision blurred [Unknown]
  - Dysuria [Unknown]
  - Drug ineffective [Unknown]
  - Diabetes mellitus [Unknown]

NARRATIVE: CASE EVENT DATE: 201711
